FAERS Safety Report 9752201 (Version 1)
Quarter: 2013Q4

REPORT INFORMATION
  Report Type: Spontaneous
  Country: US (occurrence: None)
  Receive Date: 20131211
  Receipt Date: 20131211
  Transmission Date: 20140711
  Serious: No
  Sender: FDA-Public Use
  Company Number: None

PATIENT
  Age: 3 Year
  Sex: Female
  Weight: 27.4 kg

DRUGS (1)
  1. KLONOPIN [Suspect]
     Indication: EPILEPSY
     Dosage: 1 STABIET AT BEDTIME ORALLY
     Dates: start: 200911

REACTIONS (2)
  - Convulsion [None]
  - Product substitution issue [None]
